FAERS Safety Report 5731513-8 (Version None)
Quarter: 2008Q2

REPORT INFORMATION
  Report Type: 
  Country: None (occurrence: None)
  Receive Date: 20080508
  Receipt Date: 20080505
  Transmission Date: 20081010
  Serious: Yes (Other)
  Sender: FDA-Public Use
  Company Number: PHEH2008US03900

PATIENT
  Age: 50 Year
  Sex: Female
  Weight: 83.9 kg

DRUGS (1)
  1. EXJADE [Suspect]
     Indication: HAEMOCHROMATOSIS
     Dosage: 1500 MG DAILY
     Route: 048
     Dates: start: 20080405, end: 20080419

REACTIONS (10)
  - ANXIETY [None]
  - APHONIA [None]
  - DYSPHAGIA [None]
  - EAR INFECTION [None]
  - INSOMNIA [None]
  - LARYNGEAL ULCERATION [None]
  - LYMPHADENOPATHY [None]
  - MOUTH ULCERATION [None]
  - ORAL INFECTION [None]
  - THROAT TIGHTNESS [None]
